FAERS Safety Report 21037097 (Version 2)
Quarter: 2022Q3

REPORT INFORMATION
  Report Type: Spontaneous
  Country: JP (occurrence: JP)
  Receive Date: 20220702
  Receipt Date: 20220708
  Transmission Date: 20221027
  Serious: Yes (Other)
  Sender: FDA-Public Use
  Company Number: JP-CHUGAI-2022002719

PATIENT
  Age: 9 Decade
  Sex: Female

DRUGS (9)
  1. TECENTRIQ [Suspect]
     Active Substance: ATEZOLIZUMAB
     Indication: Hepatocellular carcinoma
     Route: 041
     Dates: start: 20210422, end: 20210827
  2. TECENTRIQ [Suspect]
     Active Substance: ATEZOLIZUMAB
     Route: 041
     Dates: start: 20211217, end: 20211217
  3. TECENTRIQ [Suspect]
     Active Substance: ATEZOLIZUMAB
     Dosage: 1200 UNK
     Route: 041
     Dates: start: 20220204
  4. TECENTRIQ [Suspect]
     Active Substance: ATEZOLIZUMAB
     Dosage: 1200 UNK
     Route: 041
  5. AVASTIN [Suspect]
     Active Substance: BEVACIZUMAB
     Indication: Hepatocellular carcinoma
     Route: 041
     Dates: start: 20210422, end: 20210827
  6. AVASTIN [Suspect]
     Active Substance: BEVACIZUMAB
     Dosage: SINGLE
     Route: 041
     Dates: start: 20211217, end: 20211217
  7. AVASTIN [Suspect]
     Active Substance: BEVACIZUMAB
     Dosage: UNK, SINGLE
     Route: 041
     Dates: start: 20220204
  8. AVASTIN [Suspect]
     Active Substance: BEVACIZUMAB
     Dosage: 15 UNK
     Route: 041
  9. DENOSUMAB [Suspect]
     Active Substance: DENOSUMAB
     Indication: Metastases to bone
     Dosage: UNK
     Route: 058
     Dates: start: 202102

REACTIONS (2)
  - Osteonecrosis [Not Recovered/Not Resolved]
  - Platelet count decreased [Not Recovered/Not Resolved]

NARRATIVE: CASE EVENT DATE: 20211217
